FAERS Safety Report 12658984 (Version 1)
Quarter: 2016Q3

REPORT INFORMATION
  Report Type: Spontaneous
  Country: US (occurrence: None)
  Receive Date: 20160816
  Receipt Date: 20160816
  Transmission Date: 20161109
  Serious: Yes (Life-Threatening)
  Sender: FDA-Public Use
  Company Number: None

PATIENT
  Age: 81 Year
  Sex: Female
  Weight: 63.5 kg

DRUGS (5)
  1. GLUCOSIMINE [Concomitant]
  2. NEXIUM [Concomitant]
     Active Substance: ESOMEPRAZOLE MAGNESIUM
  3. REPATHA [Suspect]
     Active Substance: EVOLOCUMAB
     Dosage: 140 MG/ML 1 INJECTION EVERY 2 WEEKS 1 INJECTION EVERY WEEKS
     Dates: start: 20150928, end: 20160203
  4. NORPRO [Concomitant]
  5. CHRONDROTIN [Concomitant]

REACTIONS (5)
  - Blood pressure increased [None]
  - Drug hypersensitivity [None]
  - Gait disturbance [None]
  - Arthralgia [None]
  - Urinary tract infection [None]

NARRATIVE: CASE EVENT DATE: 20160802
